FAERS Safety Report 20947263 (Version 1)
Quarter: 2022Q2

REPORT INFORMATION
  Report Type: Spontaneous
  Country: US (occurrence: US)
  Receive Date: 20220610
  Receipt Date: 20220610
  Transmission Date: 20220721
  Serious: Yes (Hospitalization)
  Sender: FDA-Public Use
  Company Number: US-GILEAD-2022-0585073

PATIENT
  Age: 56 Year
  Sex: Female

DRUGS (1)
  1. TRODELVY [Suspect]
     Active Substance: SACITUZUMAB GOVITECAN-HZIY
     Indication: Product used for unknown indication
     Dosage: 7 DOSES
     Route: 065
     Dates: start: 20220214

REACTIONS (3)
  - Electrolyte imbalance [Unknown]
  - Headache [Unknown]
  - Nausea [Unknown]
